FAERS Safety Report 5264335-5 (Version None)
Quarter: 2007Q1

REPORT INFORMATION
  Report Type: 
  Country: None (occurrence: None)
  Receive Date: 20070309
  Receipt Date: 20070302
  Transmission Date: 20070707
  Serious: Yes (Other)
  Sender: FDA-Public Use
  Company Number: S07-CAN-00979-01

PATIENT
  Sex: Female

DRUGS (1)
  1. CERVIDIL [Suspect]
     Dosage: 10 MG ONCE VG
     Route: 067

REACTIONS (1)
  - PREMATURE SEPARATION OF PLACENTA [None]
